FAERS Safety Report 9372994 (Version 1)
Quarter: 2013Q2

REPORT INFORMATION
  Report Type: Spontaneous
  Country: US (occurrence: US)
  Receive Date: 20130627
  Receipt Date: 20130627
  Transmission Date: 20140414
  Serious: Yes (Other)
  Sender: FDA-Public Use
  Company Number: US-BRISTOL-MYERS SQUIBB COMPANY-19021682

PATIENT
  Age: 64 Year
  Sex: Female
  Weight: 65.76 kg

DRUGS (1)
  1. ABILIFY TABS [Suspect]
     Dosage: 10 MG TO 15 MG (30 MG TABLET DIVEDED INTO TWO HALFS)

REACTIONS (2)
  - Cerebrovascular accident [Unknown]
  - Affect lability [Unknown]
